APPROVED DRUG PRODUCT: HEPARIN SODIUM
Active Ingredient: HEPARIN SODIUM
Strength: 5,000 UNITS/ML
Dosage Form/Route: INJECTABLE;INJECTION
Application: A091659 | Product #001
Applicant: CASI PHARMACEUTICALS INC
Approved: Jun 8, 2011 | RLD: No | RS: No | Type: DISCN